FAERS Safety Report 5531787-2 (Version None)
Quarter: 2007Q4

REPORT INFORMATION
  Report Type: 
  Country: None (occurrence: None)
  Receive Date: 20071128
  Receipt Date: 20071119
  Transmission Date: 20080405
  Serious: No
  Sender: FDA-Public Use
  Company Number: 2007BI004193

PATIENT
  Age: 38 Year
  Sex: Female

DRUGS (1)
  1. NATALIZUMAB [Suspect]
     Indication: MULTIPLE SCLEROSIS
     Dosage: 300 MG;QM;IV
     Route: 042
     Dates: start: 20060929

REACTIONS (6)
  - CHEST PAIN [None]
  - DYSPNOEA [None]
  - FATIGUE [None]
  - INFUSION RELATED REACTION [None]
  - OESOPHAGEAL DISCOMFORT [None]
  - ORAL CANDIDIASIS [None]
